FAERS Safety Report 5792202-7 (Version None)
Quarter: 2008Q2

REPORT INFORMATION
  Report Type: 
  Country: None (occurrence: None)
  Receive Date: 20080626
  Receipt Date: 20080625
  Transmission Date: 20081010
  Serious: Yes (Other)
  Sender: FDA-Public Use
  Company Number: US-BOEHRINGER INGELHEIM GMBH, GERMANY-2008-BP-06568BP

PATIENT
  Age: 19 Year
  Sex: Female
  Weight: 48 kg

DRUGS (11)
  1. APTIVUS/RITONAVIR CAPSULES [Suspect]
     Dates: start: 20051210, end: 20080424
  2. NORVIR [Concomitant]
     Dates: start: 20051210, end: 20080424
  3. TRUVADA [Concomitant]
     Dates: start: 20051210, end: 20080424
  4. SINGULAIR [Concomitant]
  5. ENALAPRIL MALEATE [Concomitant]
     Dates: start: 20051201
  6. COZAAR [Concomitant]
     Dates: start: 20070301
  7. PREVACID [Concomitant]
  8. BENADRYL [Concomitant]
  9. CITRACAL [Concomitant]
  10. ALBUTEROL [Concomitant]
  11. PAMELOR [Concomitant]

REACTIONS (5)
  - ACTIVATED PARTIAL THROMBOPLASTIN TIME PROLONGED [None]
  - CONTUSION [None]
  - EPISTAXIS [None]
  - HEADACHE [None]
  - MENORRHAGIA [None]
